FAERS Safety Report 8449972-9 (Version None)
Quarter: 2012Q2

REPORT INFORMATION
  Report Type: 
  Country: None (occurrence: None)
  Receive Date: 20120620
  Receipt Date: 20120615
  Transmission Date: 20120825
  Serious: Yes (Death)
  Sender: FDA-Public Use
  Company Number: PHHY2012MX052235

PATIENT
  Age: 92 Year
  Sex: Female

DRUGS (3)
  1. ZOLEDRONOC ACID [Suspect]
     Indication: OSTEOPOROSIS
     Dosage: 5MG/100 ML PER YEAR
     Route: 042
     Dates: start: 20080801
  2. PLAVIX [Concomitant]
     Indication: CARDIAC DISORDER
     Dosage: 1 DF, ONCE/SINGLE
  3. ASPIRIN [Concomitant]
     Indication: CARDIAC DISORDER
     Dosage: 1 DF, ONCE/SINGLE

REACTIONS (1)
  - MYOCARDIAL INFARCTION [None]
